FAERS Safety Report 22057681 (Version 5)
Quarter: 2023Q2

REPORT INFORMATION
  Report Type: Spontaneous
  Country: US (occurrence: US)
  Receive Date: 20230303
  Receipt Date: 20230522
  Transmission Date: 20230721
  Serious: Yes (Other)
  Sender: FDA-Public Use
  Company Number: US-Vifor (International) Inc.-VIT-2023-01507

PATIENT
  Age: 70 Year
  Sex: Female
  Weight: 48.6 kg

DRUGS (6)
  1. MIRCERA [Suspect]
     Active Substance: METHOXY POLYETHYLENE GLYCOL-EPOETIN BETA
     Indication: Anaemia
     Dosage: FIRST DOSE
     Route: 042
     Dates: start: 20230124
  2. MIRCERA [Suspect]
     Active Substance: METHOXY POLYETHYLENE GLYCOL-EPOETIN BETA
     Route: 042
     Dates: start: 20230215, end: 20230215
  3. VENOFER [Suspect]
     Active Substance: IRON SUCROSE
     Indication: Anaemia
     Route: 042
     Dates: start: 20230124, end: 20230215
  4. CALCITRIOL [Concomitant]
     Active Substance: CALCITRIOL
  5. COREG [Concomitant]
     Active Substance: CARVEDILOL
     Dosage: DURATION- ONGOING
     Route: 048
     Dates: start: 20221206
  6. AMLODIPINE [Concomitant]
     Active Substance: AMLODIPINE BESYLATE
     Dosage: DURATION-ONGOING
     Route: 048
     Dates: start: 20220825

REACTIONS (7)
  - Renal disorder [Recovered/Resolved]
  - Hyperventilation [Recovered/Resolved]
  - Dyspnoea [Recovered/Resolved]
  - Feeling hot [Recovered/Resolved]
  - Blood pressure abnormal [Recovered/Resolved]
  - Nausea [Recovered/Resolved]
  - Flushing [Recovered/Resolved]

NARRATIVE: CASE EVENT DATE: 20230215
